FAERS Safety Report 4783688-5 (Version None)
Quarter: 2005Q3

REPORT INFORMATION
  Report Type: 
  Country: None (occurrence: None)
  Receive Date: 20050928
  Receipt Date: 20050913
  Transmission Date: 20060218
  Serious: Yes (Other)
  Sender: FDA-Public Use
  Company Number: 2005P1000427

PATIENT
  Age: 54 Year

DRUGS (2)
  1. RETEVASE [Suspect]
     Indication: ACUTE MYOCARDIAL INFARCTION
     Dosage: IV
  2. ABCIXIMAB (ABCIXIMAB) [Suspect]
     Indication: ACUTE MYOCARDIAL INFARCTION
     Dosage: IV
     Route: 042

REACTIONS (1)
  - CORONARY ARTERY DISEASE [None]
